FAERS Safety Report 24261576 (Version 3)
Quarter: 2024Q3

REPORT INFORMATION
  Report Type: Spontaneous
  Country: US (occurrence: US)
  Receive Date: 20240829
  Receipt Date: 20240912
  Transmission Date: 20241017
  Serious: Yes (Death)
  Sender: MELINTA THERAPEUTICS
  Company Number: US-MELINTA THERAPEUTICS, LLC-US-MLNT-24-00408

PATIENT

DRUGS (2)
  1. KIMYRSA [Suspect]
     Active Substance: ORITAVANCIN DIPHOSPHATE
     Indication: Cellulitis
     Dosage: 1200 MILLIGRAM, SINGLE
     Route: 041
     Dates: start: 20240822, end: 20240822
  2. CEFTRIAXONE [Concomitant]
     Active Substance: CEFTRIAXONE\CEFTRIAXONE SODIUM
     Indication: Product used for unknown indication
     Dosage: UNK
     Dates: start: 20240822

REACTIONS (2)
  - Cardiac arrest [Fatal]
  - Anaphylactic reaction [Fatal]

NARRATIVE: CASE EVENT DATE: 20240822
